FAERS Safety Report 7457512-6 (Version None)
Quarter: 2011Q2

REPORT INFORMATION
  Report Type: 
  Country: None (occurrence: None)
  Receive Date: 20110504
  Receipt Date: 20110421
  Transmission Date: 20111010
  Serious: No
  Sender: FDA-Public Use
  Company Number: US-B.I. PHARMACEUTICALS,INC./RIDGEFIELD-2011-BP-11436BP

PATIENT
  Sex: Male

DRUGS (6)
  1. FENTANYL-100 [Concomitant]
     Indication: ARTHRITIS
     Route: 062
     Dates: start: 20040101
  2. ALTACE [Concomitant]
     Indication: HYPERTENSION
     Dosage: 20 MG
     Route: 048
  3. TRAMADOL [Concomitant]
     Indication: ARTHRITIS
     Route: 048
     Dates: start: 20090101
  4. FLOMAX [Suspect]
     Indication: BENIGN PROSTATIC HYPERPLASIA
     Route: 048
     Dates: start: 20080101, end: 20100101
  5. FLOMAX [Suspect]
     Dosage: 0.4 MG
     Route: 048
     Dates: start: 20100401
  6. ROBAXIN [Concomitant]
     Indication: BACK PAIN
     Route: 048

REACTIONS (1)
  - DRUG INEFFECTIVE [None]
